FAERS Safety Report 25285050 (Version 2)
Quarter: 2025Q2

REPORT INFORMATION
  Report Type: Report from Study
  Country: US (occurrence: US)
  Receive Date: 20250508
  Receipt Date: 20250529
  Transmission Date: 20250717
  Serious: No
  Sender: SANDOZ
  Company Number: US-SANDOZ-SDZ2025US027918

PATIENT
  Sex: Male

DRUGS (4)
  1. OMNITROPE [Suspect]
     Active Substance: SOMATROPIN
     Route: 065
  2. OMNITROPE [Suspect]
     Active Substance: SOMATROPIN
     Route: 065
  3. OMNITROPE [Suspect]
     Active Substance: SOMATROPIN
     Indication: Short stature
     Dosage: 3 MG, QD
     Route: 058
  4. OMNITROPE [Suspect]
     Active Substance: SOMATROPIN
     Indication: Short stature
     Dosage: 3 MG, QD
     Route: 058

REACTIONS (4)
  - Injection site pain [Unknown]
  - Circumstance or information capable of leading to device use error [Unknown]
  - Product knowledge deficit [Unknown]
  - Device leakage [Unknown]
